FAERS Safety Report 6240023-3 (Version None)
Quarter: 2009Q2

REPORT INFORMATION
  Report Type: 
  Country: None (occurrence: None)
  Receive Date: 20090623
  Receipt Date: 20090617
  Transmission Date: 20091009
  Serious: Yes (Death, Other)
  Sender: FDA-Public Use
  Company Number: PHHY2009JP24404

PATIENT
  Age: 30 Year
  Sex: Female

DRUGS (1)
  1. CYCLOSPORINE [Suspect]
     Indication: LUNG TRANSPLANT

REACTIONS (4)
  - ASTHMA [None]
  - BRONCHITIS [None]
  - BRONCHOPULMONARY ASPERGILLOSIS [None]
  - RESTRICTIVE PULMONARY DISEASE [None]
